FAERS Safety Report 13331376 (Version 1)
Quarter: 2017Q1

REPORT INFORMATION
  Report Type: Spontaneous
  Country: US (occurrence: US)
  Receive Date: 20170313
  Receipt Date: 20170313
  Transmission Date: 20170428
  Serious: Yes (Other)
  Sender: FDA-Public Use
  Company Number: None

PATIENT
  Age: 62 Year
  Sex: Female
  Weight: 78.75 kg

DRUGS (11)
  1. BIOTIN [Concomitant]
     Active Substance: BIOTIN
  2. GREEN TEA CONCENTRATE [Concomitant]
  3. VITAMIN D [Concomitant]
     Active Substance: CHOLECALCIFEROL
  4. BORAGE OIL [Concomitant]
     Active Substance: BORAGE OIL
  5. VITAMIN B12 [Concomitant]
     Active Substance: CYANOCOBALAMIN
  6. MATURE MULTIVITAMIN ONCE A DAY (ALSO HAS LYCOPENE LUTEIN CALCIUM) [Concomitant]
     Active Substance: VITAMINS
  7. VERSED [Suspect]
     Active Substance: MIDAZOLAM HYDROCHLORIDE
     Indication: CATARACT OPERATION
     Dosage: QUANTITY:1 INJECTION(S);OTHER FREQUENCY:1X DURING SURGERY;?
     Route: 042
     Dates: start: 20161209
  8. VITAMIN C [Concomitant]
     Active Substance: ASCORBIC ACID
  9. MAGNESIUM [Concomitant]
     Active Substance: MAGNESIUM
  10. FISH OIL [Concomitant]
     Active Substance: FISH OIL
  11. BABY ASPIRIN [Concomitant]
     Active Substance: ASPIRIN

REACTIONS (2)
  - Memory impairment [None]
  - Emotional disorder [None]

NARRATIVE: CASE EVENT DATE: 20161209
